FAERS Safety Report 13682075 (Version 1)
Quarter: 2017Q2

REPORT INFORMATION
  Report Type: Spontaneous
  Country: US (occurrence: US)
  Receive Date: 20170623
  Receipt Date: 20170623
  Transmission Date: 20170830
  Serious: Yes (Hospitalization)
  Sender: FDA-Public Use
  Company Number: US-LPDUSPRD-20170820

PATIENT
  Age: 63 Year
  Sex: Female

DRUGS (3)
  1. METOPROLOL INJECTION, USP (1355-10) [Suspect]
     Active Substance: METOPROLOL
     Dosage: DOSE NOT PROVIDED
     Route: 042
  2. FEXOFENADINE/PSEUDOEPHEDRINE [Concomitant]
     Active Substance: FEXOFENADINE\PSEUDOEPHEDRINE
     Dosage: DOSE NOT PROVIDED
     Route: 065
  3. METOPROLOL. [Suspect]
     Active Substance: METOPROLOL
     Dosage: DOSE NOT PROVIDED
     Route: 048

REACTIONS (2)
  - Arteriospasm coronary [Unknown]
  - Acute myocardial infarction [Unknown]
